FAERS Safety Report 7221668-0 (Version None)
Quarter: 2011Q1

REPORT INFORMATION
  Report Type: 
  Country: None (occurrence: None)
  Receive Date: 20110112
  Receipt Date: 20110111
  Transmission Date: 20110831
  Serious: Yes (Death)
  Sender: FDA-Public Use
  Company Number: JP-ABBOTT-10P-087-0693111-00

PATIENT
  Age: 66 Year
  Sex: Male
  Weight: 60 kg

DRUGS (2)
  1. LEUPLIN SR FOR INJECTION 11.25 MG [Suspect]
     Indication: PROSTATE CANCER STAGE I
     Route: 058
     Dates: start: 20071101, end: 20080813
  2. BICALUTAMIDE [Concomitant]
     Indication: PROSTATE CANCER STAGE I
     Route: 048
     Dates: end: 20080910

REACTIONS (1)
  - SKIN CANCER [None]
